FAERS Safety Report 20479919 (Version 1)
Quarter: 2022Q1

REPORT INFORMATION
  Report Type: Spontaneous
  Country: US (occurrence: None)
  Receive Date: 20220215
  Receipt Date: 20220215
  Transmission Date: 20220423
  Serious: No
  Sender: FDA-Public Use
  Company Number: None

PATIENT
  Age: 79 Year
  Sex: Male

DRUGS (1)
  1. IMATINIB MESYLATE [Suspect]
     Active Substance: IMATINIB MESYLATE
     Dosage: 400 DAILY ORAL?
     Route: 048
     Dates: start: 20191108

REACTIONS (4)
  - Cardiac disorder [None]
  - Infection [None]
  - Respiratory disorder [None]
  - Therapy interrupted [None]

NARRATIVE: CASE EVENT DATE: 20220101
